FAERS Safety Report 6144852-6 (Version None)
Quarter: 2009Q2

REPORT INFORMATION
  Report Type: 
  Country: None (occurrence: None)
  Receive Date: 20090406
  Receipt Date: 20090323
  Transmission Date: 20091009
  Serious: Yes (Other)
  Sender: FDA-Public Use
  Company Number: US-TYCO HEALTHCARE/MALLINCKRODT-T200900731

PATIENT
  Age: 46 Year
  Sex: Female

DRUGS (3)
  1. HYDROMORPHONE HCL [Suspect]
     Indication: CANCER PAIN
     Dosage: 15 MG/H W/ 15 MG BOLUS Q 15 MIN PRN
     Route: 042
  2. METHADOSE [Suspect]
     Indication: CANCER PAIN
     Dosage: 30 MG, BID
     Route: 048
  3. CLONAZEPAM [Suspect]

REACTIONS (1)
  - MYOCLONUS [None]
